FAERS Safety Report 17655819 (Version 1)
Quarter: 2020Q2

REPORT INFORMATION
  Report Type: Spontaneous
  Country: US (occurrence: US)
  Receive Date: 20200410
  Receipt Date: 20200410
  Transmission Date: 20200713
  Serious: Yes (Other)
  Sender: FDA-Public Use
  Company Number: US-ROCHE-GNE310877

PATIENT
  Sex: Male

DRUGS (1)
  1. LUCENTIS [Suspect]
     Active Substance: RANIBIZUMAB
     Indication: VENOUS OCCLUSION
     Dosage: UNK
     Route: 031
     Dates: start: 20081201

REACTIONS (4)
  - Cataract [Unknown]
  - Urinary tract infection [Unknown]
  - Lower respiratory tract congestion [Unknown]
  - Ocular vasculitis [Unknown]
